FAERS Safety Report 8176113-8 (Version None)
Quarter: 2012Q1

REPORT INFORMATION
  Report Type: 
  Country: None (occurrence: None)
  Receive Date: 20120301
  Receipt Date: 20120221
  Transmission Date: 20120608
  Serious: Yes (Hospitalization)
  Sender: FDA-Public Use
  Company Number: US-BAYER-2011-102998

PATIENT
  Age: 24 Year
  Sex: Female

DRUGS (4)
  1. TYLENOL WITH CODEIN #3 [Concomitant]
     Indication: PAIN
     Dosage: UNK UNK, PRN
     Route: 048
  2. DROSPIRENONE AND ETHINYL ESTRADIOL [Suspect]
  3. PREDNISONE TAB [Concomitant]
  4. IBUPROFEN [Concomitant]
     Indication: PAIN
     Dosage: UNK UNK, PRN
     Route: 048

REACTIONS (9)
  - GENERAL PHYSICAL HEALTH DETERIORATION [None]
  - PULMONARY EMBOLISM [None]
  - ANHEDONIA [None]
  - PAIN [None]
  - EMOTIONAL DISTRESS [None]
  - THROMBOSIS [None]
  - INJURY [None]
  - ANXIETY [None]
  - PULMONARY INFARCTION [None]
